FAERS Safety Report 12710312 (Version 3)
Quarter: 2025Q3

REPORT INFORMATION
  Report Type: Spontaneous
  Country: US (occurrence: US)
  Receive Date: 20160902
  Receipt Date: 20250801
  Transmission Date: 20251021
  Serious: Yes (Hospitalization, Other)
  Sender: PFIZER
  Company Number: US-PFIZER INC-2016401919

PATIENT
  Age: 59 Year
  Sex: Male

DRUGS (30)
  1. DOXORUBICIN HYDROCHLORIDE [Suspect]
     Active Substance: DOXORUBICIN HYDROCHLORIDE
     Indication: Acute lymphocytic leukaemia
  2. DOXORUBICIN HYDROCHLORIDE [Suspect]
     Active Substance: DOXORUBICIN HYDROCHLORIDE
     Dates: start: 20100105
  3. CYTARABINE [Suspect]
     Active Substance: CYTARABINE
     Indication: Acute lymphocytic leukaemia
  4. CYTARABINE [Suspect]
     Active Substance: CYTARABINE
     Dates: start: 20100105
  5. VINCRISTINE SULFATE [Suspect]
     Active Substance: VINCRISTINE SULFATE
     Indication: Acute lymphocytic leukaemia
  6. VINCRISTINE SULFATE [Suspect]
     Active Substance: VINCRISTINE SULFATE
     Dates: start: 20100105
  7. METHOTREXATE SODIUM [Suspect]
     Active Substance: METHOTREXATE SODIUM
     Indication: Acute lymphocytic leukaemia
  8. METHOTREXATE SODIUM [Suspect]
     Active Substance: METHOTREXATE SODIUM
     Dates: start: 20100105
  9. BOSUTINIB [Suspect]
     Active Substance: BOSUTINIB
  10. METHYLPREDNISOLONE ACETATE [Suspect]
     Active Substance: METHYLPREDNISOLONE ACETATE
  11. LEUCOVORIN CALCIUM [Suspect]
     Active Substance: LEUCOVORIN CALCIUM
  12. CYCLOPHOSPHAMIDE [Suspect]
     Active Substance: CYCLOPHOSPHAMIDE
     Indication: Acute lymphocytic leukaemia
  13. CYCLOPHOSPHAMIDE [Suspect]
     Active Substance: CYCLOPHOSPHAMIDE
     Dates: start: 20100105
  14. DEXAMETHASONE [Suspect]
     Active Substance: DEXAMETHASONE
     Indication: Acute lymphocytic leukaemia
  15. DEXAMETHASONE [Suspect]
     Active Substance: DEXAMETHASONE
     Dates: start: 20100105
  16. DEXAMETHASONE [Suspect]
     Active Substance: DEXAMETHASONE
  17. BLINATUMOMAB [Suspect]
     Active Substance: BLINATUMOMAB
     Dates: start: 20150223
  18. BLINATUMOMAB [Suspect]
     Active Substance: BLINATUMOMAB
     Dates: start: 20151229
  19. DASATINIB [Suspect]
     Active Substance: DASATINIB
     Indication: Acute lymphocytic leukaemia
  20. DASATINIB [Suspect]
     Active Substance: DASATINIB
  21. NILOTINIB [Suspect]
     Active Substance: NILOTINIB
  22. PONATINIB [Suspect]
     Active Substance: PONATINIB
     Dates: start: 20110411
  23. PONATINIB [Suspect]
     Active Substance: PONATINIB
  24. GLEEVEC [Suspect]
     Active Substance: IMATINIB MESYLATE
     Indication: Acute lymphocytic leukaemia
     Dates: start: 200709
  25. CYCLOPHOSPHAMIDE\CYTARABINE\DEXAMETHASONE\DOXORUBICIN\METHOTREXATE\VIN [Suspect]
     Active Substance: CYCLOPHOSPHAMIDE\CYTARABINE\DEXAMETHASONE\DOXORUBICIN\METHOTREXATE\VINCRISTINE
     Indication: Acute lymphocytic leukaemia
     Dates: start: 200603
  26. CYCLOPHOSPHAMIDE\CYTARABINE\DEXAMETHASONE\DOXORUBICIN\METHOTREXATE\VIN [Suspect]
     Active Substance: CYCLOPHOSPHAMIDE\CYTARABINE\DEXAMETHASONE\DOXORUBICIN\METHOTREXATE\VINCRISTINE
     Dates: start: 20100105
  27. CLOFARABINE [Concomitant]
     Active Substance: CLOFARABINE
  28. COREG [Concomitant]
     Active Substance: CARVEDILOL
     Dates: end: 20131031
  29. COREG [Concomitant]
     Active Substance: CARVEDILOL
     Dosage: 30 MG, 1X/DAY
     Dates: start: 20131207
  30. COREG [Concomitant]
     Active Substance: CARVEDILOL
     Dosage: 45 MG, 1X/DAY

REACTIONS (15)
  - Epiploic appendagitis [Recovered/Resolved]
  - Renal impairment [Unknown]
  - Pancytopenia [Unknown]
  - Pyrexia [Unknown]
  - Pleural effusion [Unknown]
  - Rash [Unknown]
  - Pulmonary toxicity [Unknown]
  - Subdural haematoma [Recovered/Resolved]
  - Renal failure [Recovered/Resolved]
  - Sepsis [Recovered/Resolved]
  - Neutropenic infection [Unknown]
  - Arteritis [Unknown]
  - Colitis [Unknown]
  - Malignant neoplasm progression [Recovering/Resolving]
  - Acute lymphocytic leukaemia [Recovering/Resolving]

NARRATIVE: CASE EVENT DATE: 20091201
